FAERS Safety Report 9239036 (Version 1)
Quarter: 2013Q2

REPORT INFORMATION
  Report Type: Spontaneous
  Country: US (occurrence: US)
  Receive Date: 20130418
  Receipt Date: 20130418
  Transmission Date: 20140414
  Serious: No
  Sender: FDA-Public Use
  Company Number: US-PFIZER INC-2013116757

PATIENT
  Sex: 0

DRUGS (1)
  1. VFEND [Suspect]
     Indication: FUNGAL INFECTION
     Dosage: 200 MG, 2X/DAY

REACTIONS (4)
  - Excessive eye blinking [Unknown]
  - Visual acuity reduced [Unknown]
  - Vision blurred [Unknown]
  - Photophobia [Unknown]
